FAERS Safety Report 6437772-0 (Version None)
Quarter: 2009Q4

REPORT INFORMATION
  Report Type: 
  Country: None (occurrence: None)
  Receive Date: 20091112
  Receipt Date: 20091102
  Transmission Date: 20100525
  Serious: No
  Sender: FDA-Public Use
  Company Number: US-B.I. PHARMACEUTICALS,INC./RIDGEFIELD-2009-BP-12755BP

PATIENT
  Age: 85 Year
  Sex: Male

DRUGS (1)
  1. FLOMAX [Suspect]
     Indication: POLLAKIURIA
     Dosage: 0.8 MG
     Route: 048
     Dates: start: 20070101, end: 20091001

REACTIONS (1)
  - PROSTATOMEGALY [None]
